FAERS Safety Report 5332477-1 (Version None)
Quarter: 2007Q2

REPORT INFORMATION
  Report Type: 
  Country: None (occurrence: None)
  Receive Date: 20070523
  Receipt Date: 20070515
  Transmission Date: 20071010
  Serious: Yes (Other)
  Sender: FDA-Public Use
  Company Number: JP-ELI_LILLY_AND_COMPANY-JP200705004309

PATIENT
  Age: 56 Year
  Sex: Female

DRUGS (1)
  1. EVISTA [Suspect]
     Route: 048
     Dates: start: 20070201

REACTIONS (2)
  - ANOREXIA [None]
  - HEPATIC FUNCTION ABNORMAL [None]
